FAERS Safety Report 9971455 (Version 1)
Quarter: 2014Q1

REPORT INFORMATION
  Report Type: Report from Study
  Country: US (occurrence: US)
  Receive Date: 20140306
  Receipt Date: 20140306
  Transmission Date: 20141002
  Serious: No
  Sender: FDA-Public Use
  Company Number: US-ABBVIE-13P-163-1152800-00

PATIENT
  Age: 50 Year
  Sex: Female

DRUGS (16)
  1. HUMIRA [Suspect]
     Indication: COLITIS ULCERATIVE
     Dosage: LOADING DOSE
     Dates: start: 20130924, end: 20130924
  2. HUMIRA [Suspect]
  3. DELZICOL [Concomitant]
     Indication: COLITIS ULCERATIVE
     Route: 048
  4. BLACK COHOSH [Concomitant]
     Indication: NIGHT SWEATS
  5. DILTIAZEM ER [Concomitant]
     Indication: HYPERTENSION
     Dosage: 240 MG DAILY
     Route: 048
  6. BENAZEPRIL [Concomitant]
     Indication: HYPERTENSION
  7. LASIX [Concomitant]
     Indication: HYPERTENSION
     Dosage: 40 MG EVERY DAY
  8. POTASSIUM CHLORIDE [Concomitant]
     Indication: PRODUCT USED FOR UNKNOWN INDICATION
     Dosage: 20 MEQ DAILY
  9. PROTONIX [Concomitant]
     Indication: HIATUS HERNIA
  10. VITAMIN D [Concomitant]
     Indication: COLITIS ULCERATIVE
     Dosage: 400 IU DAILY
  11. MERCAPTOPURINE [Concomitant]
     Indication: PRODUCT USED FOR UNKNOWN INDICATION
     Dosage: 50 MG DAILY
  12. VIIBRYD [Concomitant]
     Indication: DEPRESSION
     Dosage: 40 MG DAILY
  13. OXYCODONE [Concomitant]
     Indication: PAIN
     Dosage: 5-325 MG, 1-2 TIMES PER DAY
     Route: 048
  14. OMEGA 3 [Concomitant]
     Indication: PRODUCT USED FOR UNKNOWN INDICATION
  15. MAGNESIUM [Concomitant]
     Indication: PRODUCT USED FOR UNKNOWN INDICATION
  16. TURMERIC [Concomitant]
     Indication: PRODUCT USED FOR UNKNOWN INDICATION

REACTIONS (7)
  - Haematoma [Not Recovered/Not Resolved]
  - Contusion [Not Recovered/Not Resolved]
  - Injection site haemorrhage [Not Recovered/Not Resolved]
  - Contusion [Not Recovered/Not Resolved]
  - Petechiae [Not Recovered/Not Resolved]
  - Contusion [Not Recovered/Not Resolved]
  - Contusion [Not Recovered/Not Resolved]
